FAERS Safety Report 6567115-3 (Version None)
Quarter: 2010Q1

REPORT INFORMATION
  Report Type: 
  Country: None (occurrence: None)
  Receive Date: 20100202
  Receipt Date: 20100126
  Transmission Date: 20100710
  Serious: Yes (Hospitalization)
  Sender: FDA-Public Use
  Company Number: US-PFIZER INC-2010002346

PATIENT
  Sex: Male
  Weight: 146.49 kg

DRUGS (29)
  1. BLINDED *IBUPROFEN [Suspect]
     Indication: OSTEOARTHRITIS
     Dosage: UNK
     Route: 048
     Dates: start: 20090429, end: 20100105
  2. NAPROXEN [Suspect]
     Indication: OSTEOARTHRITIS
     Dosage: UNK
     Route: 048
     Dates: start: 20090429, end: 20100105
  3. BLINDED *NO SUBJECT DRUG [Suspect]
     Indication: OSTEOARTHRITIS
     Dosage: UNK
     Route: 048
     Dates: start: 20090429, end: 20100105
  4. BLINDED *PLACEBO [Suspect]
     Indication: OSTEOARTHRITIS
     Dosage: UNK
     Route: 048
     Dates: start: 20090429, end: 20100105
  5. CELECOXIB [Suspect]
     Indication: OSTEOARTHRITIS
     Dosage: UNK
     Route: 048
     Dates: start: 20090429, end: 20100105
  6. BLINDED IBUPROFEN [Suspect]
     Dosage: UNK
     Route: 048
     Dates: start: 20090429, end: 20100105
  7. NAPROXEN [Suspect]
     Dosage: UNK
     Route: 048
     Dates: start: 20090429, end: 20100105
  8. BLINDED *IBUPROFEN [Suspect]
     Indication: RHEUMATOID ARTHRITIS
  9. NAPROXEN [Suspect]
     Indication: RHEUMATOID ARTHRITIS
  10. BLINDED *NO SUBJECT DRUG [Suspect]
     Indication: RHEUMATOID ARTHRITIS
  11. BLINDED *PLACEBO [Suspect]
     Indication: RHEUMATOID ARTHRITIS
  12. CELECOXIB [Suspect]
     Indication: RHEUMATOID ARTHRITIS
  13. BLINDED IBUPROFEN [Suspect]
  14. NAPROXEN [Suspect]
  15. NEXIUM [Concomitant]
     Indication: PROPHYLAXIS
     Dosage: 40 MG, 1X/DAY
     Route: 048
     Dates: start: 20090429, end: 20100105
  16. METFORMIN [Concomitant]
     Indication: TYPE 2 DIABETES MELLITUS
     Dosage: 100 MG, 2X/DAY
     Route: 048
  17. CELLCEPT [Concomitant]
     Dosage: UNK
     Route: 048
     Dates: start: 20060101
  18. LISINOPRIL [Concomitant]
     Dosage: UNK
     Route: 048
     Dates: start: 20090516
  19. LASIX [Concomitant]
     Dosage: UNK
     Route: 048
     Dates: start: 20090516
  20. METOLAZONE [Concomitant]
     Dosage: UNK
     Route: 048
     Dates: start: 20090626
  21. FLEXERIL [Concomitant]
     Dosage: UNK
     Route: 048
     Dates: start: 20050101
  22. PRAVASTATIN [Concomitant]
     Dosage: UNK
     Route: 048
     Dates: start: 20050101
  23. ATENOLOL [Concomitant]
     Dosage: UNK
     Route: 048
     Dates: start: 20050101
  24. ZETIA [Concomitant]
     Dosage: UNK
     Route: 048
     Dates: start: 20050101
  25. BYETTA [Concomitant]
     Dosage: UNK
     Route: 058
     Dates: start: 20090417
  26. PERCOCET [Concomitant]
     Dosage: UNK
     Route: 048
     Dates: start: 20030101
  27. OXYCODONE [Concomitant]
     Dosage: UNK
     Route: 048
     Dates: start: 20090101
  28. VALTREX [Concomitant]
     Dosage: UNK
     Route: 048
     Dates: start: 20091209
  29. ASPIRIN [Concomitant]
     Dosage: UNK
     Route: 048

REACTIONS (2)
  - DYSPNOEA [None]
  - OXYGEN SATURATION DECREASED [None]
